FAERS Safety Report 25340769 (Version 3)
Quarter: 2025Q4

REPORT INFORMATION
  Report Type: Report from Study
  Country: EG (occurrence: EG)
  Receive Date: 20250521
  Receipt Date: 20251216
  Transmission Date: 20260118
  Serious: Yes (Death, Hospitalization, Other)
  Sender: SANDOZ
  Company Number: EG-SANDOZ-SDZ2025EG034492

PATIENT
  Age: 56 Year
  Sex: Female

DRUGS (3)
  1. HYRIMOZ [Suspect]
     Active Substance: ADALIMUMAB-ADAZ
     Indication: Rheumatoid arthritis
     Dosage: 40 MG, Q2W
     Route: 058
     Dates: start: 20230111, end: 20240101
  2. ATORVASTATIN CALCIUM [Concomitant]
     Active Substance: ATORVASTATIN CALCIUM
     Indication: Product used for unknown indication
     Dosage: 1 TABLET, BID, STRENGTH-25MG
     Route: 048
     Dates: start: 202401
  3. BISOPROLOL FUMARATE [Concomitant]
     Active Substance: BISOPROLOL FUMARATE
     Indication: Product used for unknown indication
     Dosage: 1 TABLET, BID, STRENGTH-10MG
     Route: 048
     Dates: start: 202401

REACTIONS (8)
  - Hypoglycaemic coma [Fatal]
  - Renal impairment [Fatal]
  - Cardiac arrest [Fatal]
  - Oedema [Recovered/Resolved]
  - Hepatic enzyme increased [Recovered/Resolved]
  - Rheumatoid arthritis [Not Recovered/Not Resolved]
  - Therapy cessation [Unknown]
  - Drug ineffective [Unknown]

NARRATIVE: CASE EVENT DATE: 20240101
